FAERS Safety Report 8295759-X (Version None)
Quarter: 2012Q2

REPORT INFORMATION
  Report Type: 
  Country: None (occurrence: None)
  Receive Date: 20120416
  Receipt Date: 20120416
  Transmission Date: 20120825
  Serious: Yes (Other)
  Sender: FDA-Public Use
  Company Number: None

PATIENT
  Age: 52 Year
  Sex: Female

DRUGS (2)
  1. CLONAZEPAM [Suspect]
     Indication: PANIC DISORDER
     Dosage: 1MG TID
     Dates: start: 19960101
  2. CLONAZEPAM [Suspect]
     Indication: MAJOR DEPRESSION
     Dosage: 1MG TID
     Dates: start: 19960101

REACTIONS (3)
  - DIZZINESS [None]
  - NAUSEA [None]
  - FEELING ABNORMAL [None]
